FAERS Safety Report 10729078 (Version 1)
Quarter: 2015Q1

REPORT INFORMATION
  Report Type: Spontaneous
  Country: US (occurrence: None)
  Receive Date: 20150120
  Receipt Date: 20150120
  Transmission Date: 20150721
  Serious: Yes (Disabling)
  Sender: FDA-Public Use
  Company Number: None

PATIENT
  Age: 66 Year
  Sex: Male
  Weight: 111.59 kg

DRUGS (6)
  1. BUTRANS [Suspect]
     Active Substance: BUPRENORPHINE
     Indication: PAIN
     Dosage: 10 MCG/HR X 7 DAYS 1 PATCH EVERY 7 DAYS ON THE SKIN
     Dates: start: 20150106, end: 20150118
  2. OPANA [Suspect]
     Active Substance: OXYMORPHONE HYDROCHLORIDE
  3. ZOLPIDEM TARTRATE. [Suspect]
     Active Substance: ZOLPIDEM TARTRATE
  4. BAYER [Concomitant]
     Active Substance: ASPIRIN
  5. GABAPENTIN. [Concomitant]
     Active Substance: GABAPENTIN
  6. OXYCODONE [Suspect]
     Active Substance: OXYCODONE

REACTIONS (10)
  - Headache [None]
  - Dysarthria [None]
  - Hepatic function abnormal [None]
  - Somnolence [None]
  - Aphasia [None]
  - Muscle spasms [None]
  - Vomiting [None]
  - Spinal disorder [None]
  - Nausea [None]
  - Disturbance in attention [None]

NARRATIVE: CASE EVENT DATE: 20150115
